FAERS Safety Report 7600082-X (Version None)
Quarter: 2011Q3

REPORT INFORMATION
  Report Type: 
  Country: None (occurrence: None)
  Receive Date: 20110711
  Receipt Date: 20110630
  Transmission Date: 20111222
  Serious: Yes (Hospitalization, Other)
  Sender: FDA-Public Use
  Company Number: BE-US-EMD SERONO, INC.-7068081

PATIENT
  Age: 32 Year
  Sex: Female

DRUGS (12)
  1. ESTRADIOL [Concomitant]
     Indication: HORMONE REPLACEMENT THERAPY
  2. DYDROGESTERONE TAB [Concomitant]
     Indication: HORMONE REPLACEMENT THERAPY
  3. RECOMBINANT HUMAN FOLLICLE-STIMULATING HORMONE (R-HFSH) [Suspect]
     Indication: ASSISTED FERTILISATION
     Dosage: 225 MIU
  4. INDOMETHACIN SUPPOSITORY [Concomitant]
     Indication: PRODUCT USED FOR UNKNOWN INDICATION
  5. PROGESTERONE [Concomitant]
     Indication: PRODUCT USED FOR UNKNOWN INDICATION
     Dosage: 3 * 200 MG
  6. ETHINYL ESTRADIOL [Concomitant]
     Indication: HORMONE REPLACEMENT THERAPY
  7. BUSULFAN [Concomitant]
     Indication: CHEMOTHERAPY
  8. GNRH AGONIST [Concomitant]
     Indication: TRANSPLANT
  9. CETROTIDE [Suspect]
     Indication: ASSISTED FERTILISATION
  10. ESTRO-PROGESTOGEN [Concomitant]
     Indication: TRANSPLANT
  11. CYCLOPHOSPHAMIDE [Concomitant]
     Indication: CHEMOTHERAPY
  12. NORETHISTERONE [Concomitant]
     Indication: HORMONE REPLACEMENT THERAPY

REACTIONS (6)
  - SHORTENED CERVIX [None]
  - METRORRHAGIA [None]
  - CERVIX CERCLAGE PROCEDURE [None]
  - UTERINE CONTRACTIONS DURING PREGNANCY [None]
  - NORMAL NEWBORN [None]
  - CERVICAL INCOMPETENCE [None]
